FAERS Safety Report 7724116-7 (Version None)
Quarter: 2011Q3

REPORT INFORMATION
  Report Type: 
  Country: None (occurrence: None)
  Receive Date: 20110901
  Receipt Date: 20110822
  Transmission Date: 20111222
  Serious: Yes (Other)
  Sender: FDA-Public Use
  Company Number: JP-ROCHE-797137

PATIENT
  Sex: Female

DRUGS (4)
  1. CYCLOPHOSPHAMIDE [Suspect]
     Indication: BREAST CANCER
     Route: 065
  2. EPIRUBICIN [Suspect]
     Indication: BREAST CANCER
     Route: 065
  3. TRASTUZUMAB [Suspect]
     Indication: BREAST CANCER
     Dosage: LOADING DOSE
     Route: 065
  4. TRASTUZUMAB [Suspect]
     Dosage: MAINTANANCE DOSE
     Route: 065

REACTIONS (9)
  - NEUTROPENIA [None]
  - ASPARTATE AMINOTRANSFERASE ABNORMAL [None]
  - ALANINE AMINOTRANSFERASE ABNORMAL [None]
  - LEUKOPENIA [None]
  - VOMITING [None]
  - ENCEPHALOPATHY [None]
  - FEBRILE NEUTROPENIA [None]
  - PERIPHERAL SENSORY NEUROPATHY [None]
  - PERIPHERAL MOTOR NEUROPATHY [None]
